FAERS Safety Report 13596507 (Version 1)
Quarter: 2017Q2

REPORT INFORMATION
  Report Type: Report from Study
  Country: US (occurrence: US)
  Receive Date: 20170531
  Receipt Date: 20170531
  Transmission Date: 20170830
  Serious: No
  Sender: FDA-Public Use
  Company Number: PHEH2017US016319

PATIENT
  Sex: Female
  Weight: 12.4 kg

DRUGS (1)
  1. ILARIS [Suspect]
     Active Substance: CANAKINUMAB
     Indication: STILL^S DISEASE
     Dosage: 50 MG, EVERY 4 WEEKS
     Route: 058

REACTIONS (3)
  - Pain in extremity [Unknown]
  - Arthritis [Unknown]
  - Foot deformity [Unknown]
